FAERS Safety Report 18059190 (Version 1)
Quarter: 2020Q3

REPORT INFORMATION
  Report Type: Spontaneous
  Country: US (occurrence: US)
  Receive Date: 20200723
  Receipt Date: 20200723
  Transmission Date: 20201103
  Serious: Yes (Other)
  Sender: FDA-Public Use
  Company Number: None

PATIENT
  Age: 70 Year
  Sex: Male
  Weight: 56.25 kg

DRUGS (12)
  1. VITAMIN C [Concomitant]
     Active Substance: ASCORBIC ACID
  2. TESTOSTERONE. [Concomitant]
     Active Substance: TESTOSTERONE
  3. VITAMINS B [Concomitant]
  4. VIT D [Concomitant]
     Active Substance: VITAMIN D NOS
  5. CEFDINAR [Concomitant]
  6. LUGOLS SOLUTION [Concomitant]
     Active Substance: IODINE
  7. NP THYROID [Concomitant]
     Active Substance: LEVOTHYROXINE\LIOTHYRONINE
  8. PROZAC [Concomitant]
     Active Substance: FLUOXETINE HYDROCHLORIDE
  9. VIT A [Concomitant]
  10. MULTIPLE VITAMIN [Concomitant]
     Active Substance: VITAMINS
  11. ALBUTEROL. [Concomitant]
     Active Substance: ALBUTEROL
  12. METHYLPHENIDATE HYDROCHLORIDE ER 20 MG T GENERIC FOR METADATE ER 20 MG [Suspect]
     Active Substance: METHYLPHENIDATE HYDROCHLORIDE
     Indication: ATTENTION DEFICIT HYPERACTIVITY DISORDER
     Dosage: ?          QUANTITY:3 TABLET(S);?
     Route: 048
     Dates: start: 20200722, end: 20200722

REACTIONS (6)
  - Product substitution issue [None]
  - Product solubility abnormal [None]
  - Therapeutic product effect decreased [None]
  - Dizziness [None]
  - Dyspnoea [None]
  - Abdominal pain upper [None]

NARRATIVE: CASE EVENT DATE: 20200722
